FAERS Safety Report 14162003 (Version 1)
Quarter: 2017Q4

REPORT INFORMATION
  Report Type: Spontaneous
  Country: US (occurrence: US)
  Receive Date: 20171106
  Receipt Date: 20171106
  Transmission Date: 20180321
  Serious: No
  Sender: FDA-Public Use
  Company Number: US-AMGEN-USASP2017092371

PATIENT
  Age: 39 Year
  Sex: Female
  Weight: 54.5 kg

DRUGS (4)
  1. EPOGEN [Suspect]
     Active Substance: ERYTHROPOIETIN
     Dosage: 7000 UNIT, UNK
     Route: 058
     Dates: start: 20170225
  2. EPOGEN [Suspect]
     Active Substance: ERYTHROPOIETIN
     Dosage: 5000 UNIT, UNK
     Route: 058
     Dates: start: 20170503
  3. ARANESP [Suspect]
     Active Substance: DARBEPOETIN ALFA
     Indication: ANAEMIA
     Dosage: 25 MUG, QWK
     Route: 042
     Dates: start: 20160914, end: 20160921
  4. EPOGEN [Suspect]
     Active Substance: ERYTHROPOIETIN
     Indication: ANAEMIA
     Dosage: 2200 UNIT, UNK
     Route: 058
     Dates: start: 20170215

REACTIONS (1)
  - Haemoglobin decreased [Recovered/Resolved]

NARRATIVE: CASE EVENT DATE: 20170427
